FAERS Safety Report 6993137-4 (Version None)
Quarter: 2010Q3

REPORT INFORMATION
  Report Type: 
  Country: None (occurrence: None)
  Receive Date: 20100917
  Receipt Date: 20100913
  Transmission Date: 20110219
  Serious: Yes (Other)
  Sender: FDA-Public Use
  Company Number: GB-TEVA-248568ISR

PATIENT
  Age: 70 Year
  Sex: Female

DRUGS (2)
  1. LISINOPRIL [Suspect]
     Indication: HYPERTENSION
     Route: 048
     Dates: end: 20100823
  2. RITUXIMAB [Suspect]
     Indication: RHEUMATOID ARTHRITIS
     Route: 042
     Dates: start: 20100813

REACTIONS (3)
  - DYSPNOEA [None]
  - MOUTH ULCERATION [None]
  - SWOLLEN TONGUE [None]
